FAERS Safety Report 24372852 (Version 1)
Quarter: 2024Q3

REPORT INFORMATION
  Report Type: Spontaneous
  Country: PT (occurrence: PT)
  Receive Date: 20240927
  Receipt Date: 20240927
  Transmission Date: 20241016
  Serious: Yes (Hospitalization, Other)
  Sender: RK PHARMA
  Company Number: PT-RK PHARMA, INC-20240900054

PATIENT
  Age: 84 Year
  Sex: Female

DRUGS (1)
  1. METFORMIN HYDROCHLORIDE [Suspect]
     Active Substance: METFORMIN HYDROCHLORIDE
     Indication: Diabetes mellitus
     Dosage: 1000 MILLIGRAM, BID
     Route: 065

REACTIONS (3)
  - Persecutory delusion [Recovered/Resolved]
  - Behaviour disorder [Recovered/Resolved]
  - Lactic acidosis [Recovered/Resolved]
